FAERS Safety Report 4825836-4 (Version None)
Quarter: 2005Q4

REPORT INFORMATION
  Report Type: 
  Country: None (occurrence: None)
  Receive Date: 20051111
  Receipt Date: 20051103
  Transmission Date: 20060501
  Serious: Yes (Other)
  Sender: FDA-Public Use
  Company Number: BE-JNJFOC-20051102310

PATIENT
  Sex: Male
  Weight: 2.33 kg

DRUGS (3)
  1. INFLIXIMAB, RECOMBINANT [Suspect]
     Route: 015
  2. INFLIXIMAB, RECOMBINANT [Suspect]
     Route: 015
  3. INFLIXIMAB, RECOMBINANT [Suspect]
     Indication: CROHN'S DISEASE
     Route: 015

REACTIONS (3)
  - CAESAREAN SECTION [None]
  - PREMATURE BABY [None]
  - SMALL FOR DATES BABY [None]
